FAERS Safety Report 8906440 (Version 1)
Quarter: 2012Q4

REPORT INFORMATION
  Report Type: Spontaneous
  Country: US (occurrence: None)
  Receive Date: 20121112
  Receipt Date: 20121112
  Transmission Date: 20130627
  Serious: No
  Sender: FDA-Public Use
  Company Number: None

PATIENT
  Age: 28 Year
  Sex: Female
  Weight: 68.1 kg

DRUGS (7)
  1. GADOTERIDOL [Suspect]
     Indication: MRI
     Dosage: 14 ml in 2 divided doses intravenously
     Route: 042
     Dates: start: 20120921
  2. LACOSAMIDE [Concomitant]
  3. LEVETIRACETAM [Concomitant]
  4. LORATADINE [Concomitant]
  5. BEVACIZUMAB [Concomitant]
  6. ONDANSETRON [Concomitant]
  7. PROMETHAZINE [Concomitant]

REACTIONS (3)
  - Urticaria [None]
  - Pruritus [None]
  - Contrast media allergy [None]
